FAERS Safety Report 5852335-3 (Version None)
Quarter: 2008Q3

REPORT INFORMATION
  Report Type: 
  Country: None (occurrence: None)
  Receive Date: 20080819
  Receipt Date: 20080808
  Transmission Date: 20090109
  Serious: Yes (Hospitalization)
  Sender: FDA-Public Use
  Company Number: IDR-00166

PATIENT
  Age: 63 Year
  Sex: Male
  Weight: 95.2554 kg

DRUGS (3)
  1. INDERAL LA [Suspect]
     Dosage: 80 MG
     Dates: start: 20080101
  2. ZESTRIL [Concomitant]
  3. VALIUM [Concomitant]

REACTIONS (4)
  - FEELING COLD [None]
  - HEART RATE DECREASED [None]
  - VISUAL IMPAIRMENT [None]
  - VITAL FUNCTIONS ABNORMAL [None]
